FAERS Safety Report 16087837 (Version 2)
Quarter: 2019Q1

REPORT INFORMATION
  Report Type: Spontaneous
  Country: IT (occurrence: IT)
  Receive Date: 20190319
  Receipt Date: 20190329
  Transmission Date: 20190418
  Serious: Yes (Other)
  Sender: FDA-Public Use
  Company Number: IT-ACCORD-113503

PATIENT
  Age: 67 Year
  Sex: Male

DRUGS (4)
  1. BECLOMETASONE [Suspect]
     Active Substance: BECLOMETHASONE DIPROPIONATE
     Indication: PRODUCT USED FOR UNKNOWN INDICATION
  2. EPROSARTAN/HYDROCHLOROTHIAZIDE [Concomitant]
  3. FUROSEMIDE. [Suspect]
     Active Substance: FUROSEMIDE
     Indication: PRODUCT USED FOR UNKNOWN INDICATION
  4. LACIDIPINE [Concomitant]
     Active Substance: LACIDIPINE

REACTIONS (5)
  - Oedema peripheral [Unknown]
  - Acquired macroglossia [Unknown]
  - Conjunctival hyperaemia [Unknown]
  - Angioedema [Unknown]
  - Erythema [Unknown]

NARRATIVE: CASE EVENT DATE: 20181026
